FAERS Safety Report 11722641 (Version 1)
Quarter: 2015Q4

REPORT INFORMATION
  Report Type: Spontaneous
  Country: US (occurrence: US)
  Receive Date: 20151111
  Receipt Date: 20151111
  Transmission Date: 20160304
  Serious: No
  Sender: FDA-Public Use
  Company Number: US-PFIZER INC-2015383145

PATIENT
  Age: 26 Year

DRUGS (2)
  1. EFFEXOR XR [Suspect]
     Active Substance: VENLAFAXINE HYDROCHLORIDE
     Dosage: UNK
  2. ORPHENADRINE [Suspect]
     Active Substance: ORPHENADRINE
     Dosage: UNK

REACTIONS (1)
  - Drug hypersensitivity [Unknown]
